FAERS Safety Report 8718048 (Version 2)
Quarter: 2012Q4

REPORT INFORMATION
  Report Type: Report from Study
  Country: US (occurrence: US)
  Receive Date: 20120810
  Receipt Date: 20121017
  Transmission Date: 20130627
  Serious: Yes (Other)
  Sender: FDA-Public Use
  Company Number: US-JNJFOC-20120801835

PATIENT
  Age: 35 None
  Sex: Female

DRUGS (10)
  1. REMICADE [Suspect]
     Indication: COLITIS ULCERATIVE
     Route: 042
     Dates: start: 201109
  2. REMICADE [Suspect]
     Indication: COLITIS ULCERATIVE
     Route: 042
     Dates: start: 20120516
  3. PREDNISONE [Concomitant]
     Indication: COLITIS ULCERATIVE
     Dates: start: 201106, end: 201205
  4. IMURAN [Concomitant]
     Indication: COLITIS ULCERATIVE
     Dates: start: 201109
  5. SAFYRAL [Concomitant]
     Indication: CONTRACEPTION
     Dates: start: 201205, end: 201205
  6. CALCIUM [Concomitant]
  7. VITAMIN D [Concomitant]
  8. PROBIOTIC [Concomitant]
  9. MULTIVITAMINS [Concomitant]
  10. CORTIFOAM [Concomitant]

REACTIONS (2)
  - Lupus-like syndrome [Recovering/Resolving]
  - Optic neuritis [Unknown]
